FAERS Safety Report 10417622 (Version 1)
Quarter: 2014Q2

REPORT INFORMATION
  Report Type: Spontaneous
  Country: US (occurrence: None)
  Receive Date: 20140609
  Receipt Date: 20140609
  Transmission Date: 20141212
  Serious: No
  Sender: FDA-Public Use
  Company Number: 2014TUS000560

PATIENT
  Sex: Female

DRUGS (5)
  1. BRINTELLIX [Suspect]
     Indication: DEPRESSION
     Dosage: 1/3 TAB
     Route: 048
  2. TRAZODONE [Concomitant]
  3. ATIVAN [Concomitant]
  4. ABILIFY [Concomitant]
  5. EFFEXOR [Concomitant]

REACTIONS (2)
  - Feeling abnormal [None]
  - Anxiety [None]
